FAERS Safety Report 8776982 (Version 1)
Quarter: 2012Q4

REPORT INFORMATION
  Report Type: 
  Country: FR (occurrence: FR)
  Receive Date: 20120911
  Receipt Date: 20120911
  Transmission Date: 20130627
  Serious: Yes (Hospitalization)
  Sender: FDA-Public Use
  Company Number: FR-GLAXOSMITHKLINE-B0826868A

PATIENT
  Age: 62 None
  Sex: Female

DRUGS (13)
  1. ZOPHREN [Suspect]
     Indication: PRODUCT USED FOR UNKNOWN INDICATION
     Dosage: 8MG Per day
     Route: 048
     Dates: start: 20120817, end: 20120819
  2. ENDOXAN [Suspect]
     Indication: PRODUCT USED FOR UNKNOWN INDICATION
     Dosage: 400MG Per day
     Route: 048
     Dates: start: 20120817, end: 20120819
  3. FLUDARA [Suspect]
     Indication: PRODUCT USED FOR UNKNOWN INDICATION
     Dosage: 60MG per day
     Route: 048
     Dates: start: 20120817, end: 20120819
  4. MABTHERA [Suspect]
     Indication: PRODUCT USED FOR UNKNOWN INDICATION
     Dosage: 810MG per day
     Route: 042
     Dates: start: 20120816, end: 20120816
  5. POLARAMINE [Concomitant]
     Route: 042
     Dates: start: 20120816, end: 20120816
  6. RITUXIMAB [Concomitant]
     Dosage: 810MG per day
     Route: 042
     Dates: start: 20120724, end: 20120726
  7. SOLUMEDROL [Concomitant]
     Indication: PREMEDICATION
     Route: 042
     Dates: start: 201207
  8. ZOPHREN [Concomitant]
     Indication: PREMEDICATION
     Route: 042
     Dates: start: 201207
  9. PARACETAMOL [Concomitant]
     Indication: PREMEDICATION
     Route: 042
     Dates: start: 201207
  10. BACTRIM [Concomitant]
     Route: 048
     Dates: start: 20120727
  11. ZELITREX [Concomitant]
     Route: 048
     Dates: start: 20120727
  12. RITUXIMAB [Concomitant]
     Route: 042
     Dates: start: 20120801, end: 20120801
  13. RITUXIMAB [Concomitant]
     Route: 042
     Dates: start: 20120808, end: 20120808

REACTIONS (5)
  - Pyrexia [Recovered/Resolved]
  - Chills [Recovered/Resolved]
  - Cough [Unknown]
  - Inflammation [Unknown]
  - Bronchitis [Unknown]
